FAERS Safety Report 23494535 (Version 1)
Quarter: 2024Q1

REPORT INFORMATION
  Report Type: Spontaneous
  Country: US (occurrence: US)
  Receive Date: 20240207
  Receipt Date: 20240207
  Transmission Date: 20240410
  Serious: No
  Sender: FDA-Public Use
  Company Number: US-Covis Pharma GmbH-2024COV00124

PATIENT
  Sex: Male
  Weight: 58.96 kg

DRUGS (5)
  1. RILUZOLE [Suspect]
     Active Substance: RILUZOLE
     Route: 048
  2. RADICAVA ORS [Suspect]
     Active Substance: EDARAVONE
     Indication: Amyotrophic lateral sclerosis
     Dosage: 105 MILLIGRAM DAILY FOR 10 DAYS OF 14, THEN 14 OFF.
     Route: 048
     Dates: start: 20230130
  3. RELYVRIO [Concomitant]
     Active Substance: SODIUM PHENYLBUTYRATE\TAURURSODIOL
  4. CARBIDOPA [Concomitant]
     Active Substance: CARBIDOPA
  5. ROSUVASTATIN [Concomitant]
     Active Substance: ROSUVASTATIN

REACTIONS (2)
  - Feeling abnormal [Unknown]
  - Rash [Unknown]
